FAERS Safety Report 13182005 (Version 2)
Quarter: 2017Q2

REPORT INFORMATION
  Report Type: Spontaneous
  Country: US (occurrence: US)
  Receive Date: 20170202
  Receipt Date: 20170502
  Transmission Date: 20170830
  Serious: No
  Sender: FDA-Public Use
  Company Number: US-IMPAX LABORATORIES, INC-2016-IPXL-02221

PATIENT
  Age: 62 Year
  Sex: Male
  Weight: 45 kg

DRUGS (2)
  1. RYTARY [Suspect]
     Active Substance: CARBIDOPA\LEVODOPA
     Indication: PARKINSON^S DISEASE
     Dosage: 23.75/95 MG;  3 CAPSULES 3 TIMES A DAY (AT 8 AM, 1 PM AND 6 PM)
     Route: 048
     Dates: start: 20161121
  2. MIDODRINE [Concomitant]
     Active Substance: MIDODRINE
     Indication: ORTHOSTATIC HYPOTENSION
     Dosage: UNK
     Route: 065

REACTIONS (11)
  - Dyskinesia [Not Recovered/Not Resolved]
  - Pollakiuria [Unknown]
  - Drug ineffective [Unknown]
  - Oral mucosal blistering [Not Recovered/Not Resolved]
  - Weight decreased [Not Recovered/Not Resolved]
  - Abdominal pain upper [Not Recovered/Not Resolved]
  - Paraesthesia oral [Not Recovered/Not Resolved]
  - Headache [Not Recovered/Not Resolved]
  - Speech sound disorder [Not Recovered/Not Resolved]
  - Nausea [Not Recovered/Not Resolved]
  - Anxiety [Not Recovered/Not Resolved]

NARRATIVE: CASE EVENT DATE: 2016
